FAERS Safety Report 17922009 (Version 1)
Quarter: 2020Q2

REPORT INFORMATION
  Report Type: Spontaneous
  Country: US (occurrence: US)
  Receive Date: 20200619
  Receipt Date: 20200619
  Transmission Date: 20200714
  Serious: No
  Sender: FDA-Public Use
  Company Number: None

PATIENT
  Age: 64 Year
  Sex: Female
  Weight: 90.9 kg

DRUGS (15)
  1. NORCO [Concomitant]
     Active Substance: ACETAMINOPHEN\HYDROCODONE BITARTRATE
  2. VITAMIN C [Concomitant]
     Active Substance: ASCORBIC ACID
  3. LETROZOLE 2.5MG [Concomitant]
     Active Substance: LETROZOLE
  4. AMLODIPINE [Concomitant]
     Active Substance: AMLODIPINE BESYLATE
  5. METOPROLOL SUCCINATE ER 50MG [Concomitant]
  6. ATORVASTATIN 40MG [Concomitant]
     Active Substance: ATORVASTATIN
  7. XARELTO [Concomitant]
     Active Substance: RIVAROXABAN
  8. VERZENIO [Suspect]
     Active Substance: ABEMACICLIB
     Indication: BREAST CANCER FEMALE
     Route: 048
     Dates: start: 20200604
  9. FASLODEX [Concomitant]
     Active Substance: FULVESTRANT
  10. SOTALOL 80MG [Concomitant]
     Active Substance: SOTALOL
  11. IBRANCE [Concomitant]
     Active Substance: PALBOCICLIB
  12. PREGABALIN 150MG [Concomitant]
     Active Substance: PREGABALIN
  13. SYMBICORT [Concomitant]
     Active Substance: BUDESONIDE\FORMOTEROL FUMARATE DIHYDRATE
  14. HUMULIN R [Concomitant]
     Active Substance: INSULIN HUMAN
  15. HUMULIN 70/30 [Concomitant]
     Active Substance: INSULIN HUMAN

REACTIONS (1)
  - Hypoaesthesia oral [None]

NARRATIVE: CASE EVENT DATE: 20200619
